FAERS Safety Report 6182820-9 (Version None)
Quarter: 2009Q2

REPORT INFORMATION
  Report Type: 
  Country: None (occurrence: None)
  Receive Date: 20090505
  Receipt Date: 20090420
  Transmission Date: 20091009
  Serious: Yes (Death, Life-Threatening, Hospitalization)
  Sender: FDA-Public Use
  Company Number: 2008003320

PATIENT
  Age: 73 Year
  Sex: Male
  Weight: 61.2 kg

DRUGS (9)
  1. ERLOTINIB (ERLOTINIB) (TABLET) (ERLOTINIB) [Suspect]
     Indication: LUNG SQUAMOUS CELL CARCINOMA STAGE UNSPECIFIED
     Dosage: (150 MG,QD),ORAL
     Route: 048
     Dates: start: 20081118, end: 20081129
  2. TAXOTERE [Suspect]
     Indication: LUNG SQUAMOUS CELL CARCINOMA STAGE UNSPECIFIED
     Dates: start: 20080616, end: 20080826
  3. AMLODIPINE [Concomitant]
  4. CANDESARTAN CILEXETIL [Concomitant]
  5. LOXOPROFEN (LOXOPROFEN) [Concomitant]
  6. MUCOSTA (REBAMIPIDE) [Concomitant]
  7. LENDORM [Concomitant]
  8. CODEINE PHOSPHATE (CODEINE PHOSPHATE) [Concomitant]
  9. BIO-THREE [Concomitant]

REACTIONS (11)
  - CEREBRAL INFARCTION [None]
  - DISSEMINATED INTRAVASCULAR COAGULATION [None]
  - INTERSTITIAL LUNG DISEASE [None]
  - LYMPHANGIOSIS CARCINOMATOSA [None]
  - MALIGNANT NEOPLASM PROGRESSION [None]
  - MORAXELLA INFECTION [None]
  - NON-SMALL CELL LUNG CANCER [None]
  - PLEURAL EFFUSION [None]
  - PSEUDOMONAS INFECTION [None]
  - RESPIRATORY FAILURE [None]
  - SPUTUM CULTURE POSITIVE [None]
